FAERS Safety Report 10376671 (Version 2)
Quarter: 2014Q3

REPORT INFORMATION
  Report Type: Report from Study
  Country: US (occurrence: US)
  Receive Date: 20140811
  Receipt Date: 20140811
  Transmission Date: 20150326
  Serious: Yes (Other)
  Sender: FDA-Public Use
  Company Number: US-GILEAD-2014-0109709

PATIENT
  Age: 67 Year
  Sex: Female

DRUGS (6)
  1. OLYSIO [Suspect]
     Active Substance: SIMEPREVIR
     Indication: HEPATITIS C
     Dosage: 150 MG, QD
     Route: 048
     Dates: start: 201407
  2. METOPROLOL [Concomitant]
     Active Substance: METOPROLOL
     Indication: HYPERTENSION
     Dosage: 150 MG, QD
     Route: 048
  3. HYDROCHLOROTHIAZIDE W/LOSARTAN [Concomitant]
     Active Substance: HYDROCHLOROTHIAZIDE\LOSARTAN
     Indication: HYPERTENSION
     Dosage: UNK UNK, QD
     Route: 048
  4. SOFOSBUVIR [Suspect]
     Active Substance: SOFOSBUVIR
     Indication: HEPATITIS C
     Dosage: 400 MG, QD
     Route: 048
     Dates: start: 201407
  5. ZYRTEC [Concomitant]
     Active Substance: CETIRIZINE HYDROCHLORIDE
     Indication: MULTIPLE ALLERGIES
     Dosage: 10 MG, UNK
     Route: 048
  6. MUCINEX [Concomitant]
     Active Substance: GUAIFENESIN
     Indication: MULTIPLE ALLERGIES
     Dosage: 800 MG, UNK
     Route: 048

REACTIONS (11)
  - Memory impairment [Not Recovered/Not Resolved]
  - Crying [Unknown]
  - Insomnia [Unknown]
  - Abdominal pain [Unknown]
  - Off label use [Not Recovered/Not Resolved]
  - Diplopia [Unknown]
  - Blepharospasm [Unknown]
  - Headache [Unknown]
  - Depression [Not Recovered/Not Resolved]
  - Anxiety [Unknown]
  - Vision blurred [Unknown]

NARRATIVE: CASE EVENT DATE: 201407
